FAERS Safety Report 8241745-5 (Version None)
Quarter: 2012Q1

REPORT INFORMATION
  Report Type: 
  Country: None (occurrence: None)
  Receive Date: 20120328
  Receipt Date: 20120314
  Transmission Date: 20120608
  Serious: Yes (Other)
  Sender: FDA-Public Use
  Company Number: US-ROCHE-1050031

PATIENT
  Sex: Male
  Weight: 78 kg

DRUGS (2)
  1. VEMURAFENIB [Suspect]
     Indication: NEOPLASM
     Route: 048
     Dates: start: 20090504
  2. VEMURAFENIB [Suspect]
     Dosage: 37 CYCLE
     Route: 048
     Dates: start: 20120216

REACTIONS (2)
  - HAEMORRHOIDS [None]
  - INTESTINAL POLYP [None]
